FAERS Safety Report 5691038-5 (Version None)
Quarter: 2008Q2

REPORT INFORMATION
  Report Type: 
  Country: None (occurrence: None)
  Receive Date: 20080401
  Receipt Date: 20080320
  Transmission Date: 20081010
  Serious: Yes (Other)
  Sender: FDA-Public Use
  Company Number: US-PFIZER INC-2008008654

PATIENT
  Sex: Male
  Weight: 75.8 kg

DRUGS (6)
  1. CHANTIX [Suspect]
     Indication: SMOKING CESSATION THERAPY
     Route: 048
  2. IMODIUM [Concomitant]
  3. MESTINON [Concomitant]
  4. DETROL LA [Concomitant]
  5. ASPIRIN [Concomitant]
     Dosage: DAILY DOSE:81MG
  6. VITAMIN CAP [Concomitant]

REACTIONS (3)
  - DIZZINESS [None]
  - FALL [None]
  - ORTHOSTATIC HYPOTENSION [None]
